FAERS Safety Report 13242839 (Version 1)
Quarter: 2017Q1

REPORT INFORMATION
  Report Type: Spontaneous
  Country: US (occurrence: US)
  Receive Date: 20170216
  Receipt Date: 20170216
  Transmission Date: 20170428
  Serious: Yes (Other)
  Sender: FDA-Public Use
  Company Number: None

PATIENT
  Age: 73 Year
  Sex: Male
  Weight: 104.4 kg

DRUGS (1)
  1. OPTIRAY [Suspect]
     Active Substance: IOVERSOL
     Indication: IMPLANTABLE DEFIBRILLATOR INSERTION
     Dosage: ?          OTHER FREQUENCY:ONCE;?
     Route: 022
     Dates: start: 20170215, end: 20170215

REACTIONS (3)
  - Erythema [None]
  - Pain of skin [None]
  - Skin exfoliation [None]

NARRATIVE: CASE EVENT DATE: 20160215
